FAERS Safety Report 23686019 (Version 1)
Quarter: 2024Q1

REPORT INFORMATION
  Report Type: Spontaneous
  Country: TW (occurrence: TW)
  Receive Date: 20240329
  Receipt Date: 20240329
  Transmission Date: 20240410
  Serious: Yes (Hospitalization, Other)
  Sender: FDA-Public Use
  Company Number: TW-PFIZER INC-PV202400039781

PATIENT
  Age: 63 Year
  Sex: Male

DRUGS (1)
  1. ENBREL [Suspect]
     Active Substance: ETANERCEPT
     Indication: Ankylosing spondylitis
     Dosage: 50 MG, QW
     Route: 058
     Dates: start: 20091108

REACTIONS (1)
  - Hepatic cancer [Unknown]

NARRATIVE: CASE EVENT DATE: 20240325
